FAERS Safety Report 4738397-5 (Version None)
Quarter: 2005Q4

REPORT INFORMATION
  Report Type: 
  Country: None (occurrence: None)
  Receive Date: 20050809
  Receipt Date: 20050704
  Transmission Date: 20060501
  Serious: Yes (Death, Hospitalization)
  Sender: FDA-Public Use
  Company Number: FR-GLAXOSMITHKLINE-B0387006A

PATIENT
  Age: 57 Year
  Sex: Male
  Weight: 120 kg

DRUGS (9)
  1. AUGMENTIN '125' [Suspect]
     Indication: SKIN ULCER
     Route: 065
     Dates: start: 20050320, end: 20050323
  2. FLAGYL [Suspect]
     Indication: SKIN ULCER
     Route: 065
     Dates: start: 20050320, end: 20050323
  3. CARDENSIEL [Suspect]
     Route: 065
  4. PREVISCAN 20 [Suspect]
     Route: 048
     Dates: end: 20050324
  5. MONICOR LP [Concomitant]
     Route: 065
  6. ZESTRIL [Concomitant]
     Route: 065
  7. PLAVIX [Concomitant]
     Route: 065
  8. LASIX [Concomitant]
     Route: 065
  9. CORDARONE [Concomitant]
     Route: 065

REACTIONS (7)
  - DERMATITIS BULLOUS [None]
  - LEG AMPUTATION [None]
  - LEUKOCYTOCLASTIC VASCULITIS [None]
  - PURPURA [None]
  - RASH PRURITIC [None]
  - SEPSIS [None]
  - SEPTIC SHOCK [None]
